FAERS Safety Report 4803902-7 (Version None)
Quarter: 2005Q3

REPORT INFORMATION
  Report Type: 
  Country: None (occurrence: None)
  Receive Date: 20050920
  Receipt Date: 20050708
  Transmission Date: 20060218
  Serious: No
  Sender: FDA-Public Use
  Company Number: US-YAMANOUCHI-YPA20050359

PATIENT
  Sex: Female

DRUGS (7)
  1. VESICARE [Suspect]
     Indication: HYPERTONIC BLADDER
     Dosage: 5 MG QD PO; 5 MG BID PO
     Route: 048
     Dates: start: 20050101, end: 20050101
  2. VESICARE [Suspect]
     Indication: POLLAKIURIA
     Dosage: 5 MG QD PO; 5 MG BID PO
     Route: 048
     Dates: start: 20050101, end: 20050101
  3. VESICARE [Suspect]
     Indication: URINARY INCONTINENCE
     Dosage: 5 MG QD PO; 5 MG BID PO
     Route: 048
     Dates: start: 20050101, end: 20050101
  4. VESICARE [Suspect]
     Indication: HYPERTONIC BLADDER
     Dosage: 5 MG QD PO; 5 MG BID PO
     Route: 048
     Dates: start: 20050707, end: 20050707
  5. VESICARE [Suspect]
     Indication: POLLAKIURIA
     Dosage: 5 MG QD PO; 5 MG BID PO
     Route: 048
     Dates: start: 20050707, end: 20050707
  6. VESICARE [Suspect]
     Indication: URINARY INCONTINENCE
     Dosage: 5 MG QD PO; 5 MG BID PO
     Route: 048
     Dates: start: 20050707, end: 20050707
  7. . [Concomitant]

REACTIONS (1)
  - POLLAKIURIA [None]
